FAERS Safety Report 8053208-0 (Version None)
Quarter: 2012Q1

REPORT INFORMATION
  Report Type: 
  Country: None (occurrence: None)
  Receive Date: 20120118
  Receipt Date: 20120114
  Transmission Date: 20120608
  Serious: Yes (Other)
  Sender: FDA-Public Use
  Company Number: CZ-ROCHE-529007

PATIENT
  Sex: Male

DRUGS (4)
  1. AVASTIN [Suspect]
     Indication: COLORECTAL CANCER
     Dosage: SINGLE DOSE OF 350 MG
     Route: 041
     Dates: start: 20060722, end: 20080814
  2. LEUCOVORIN CALCIUM [Concomitant]
  3. OXALIPLATIN [Concomitant]
  4. FLUOROURACIL [Concomitant]

REACTIONS (3)
  - SKIN FISSURES [None]
  - NEOPLASM MALIGNANT [None]
  - PROTEINURIA [None]
